FAERS Safety Report 8700100 (Version 2)
Quarter: 2012Q4

REPORT INFORMATION
  Report Type: Report from Study
  Country: JP (occurrence: JP)
  Receive Date: 20120802
  Receipt Date: 20121022
  Transmission Date: 20130627
  Serious: Yes (Hospitalization)
  Sender: FDA-Public Use
  Company Number: PHHY2012JP063255

PATIENT
  Age: 78 Year
  Sex: Male

DRUGS (2)
  1. AMN107 [Suspect]
     Indication: CHRONIC MYELOID LEUKAEMIA
     Dosage: 800 mg, daily
     Dates: start: 20090717, end: 20110910
  2. ANTIHYPERTENSIVE DRUGS [Concomitant]

REACTIONS (4)
  - Myocardial infarction [Recovered/Resolved]
  - Bradycardia [Recovered/Resolved]
  - Troponin T increased [Recovered/Resolved]
  - Loss of consciousness [Recovered/Resolved]
